FAERS Safety Report 10985639 (Version 1)
Quarter: 2015Q2

REPORT INFORMATION
  Report Type: Spontaneous
  Country: US (occurrence: US)
  Receive Date: 20150404
  Receipt Date: 20150404
  Transmission Date: 20150821
  Serious: No
  Sender: FDA-Public Use
  Company Number: US-SA-2014SA177690

PATIENT
  Age: 66 Year
  Sex: Female

DRUGS (1)
  1. ALLEGRA-D [Suspect]
     Active Substance: FEXOFENADINE\PSEUDOEPHEDRINE
     Indication: UPPER-AIRWAY COUGH SYNDROME
     Dosage: DOSE OF 60/120 MG TWICE A DAY.
     Route: 065
     Dates: start: 20141211, end: 20141212

REACTIONS (1)
  - Drug ineffective [Unknown]
